FAERS Safety Report 18274085 (Version 9)
Quarter: 2021Q2

REPORT INFORMATION
  Report Type: Report from Study
  Country: AR (occurrence: AR)
  Receive Date: 20200916
  Receipt Date: 20210518
  Transmission Date: 20210717
  Serious: Yes (Hospitalization, Other)
  Sender: FDA-Public Use
  Company Number: NVSC2020AR250376

PATIENT
  Age: 8 Year
  Sex: Female
  Weight: 41 kg

DRUGS (2)
  1. ILARIS [Suspect]
     Active Substance: CANAKINUMAB
     Indication: FAMILIAL MEDITERRANEAN FEVER
     Dosage: 300 MG, QMO
     Route: 058
     Dates: start: 20200325
  2. ILARIS [Suspect]
     Active Substance: CANAKINUMAB
     Dosage: 300 MG, QMO (300 MG/2 VIALS, 2 MONTHS AGO)
     Route: 058

REACTIONS (23)
  - Mucosal inflammation [Unknown]
  - Haemothorax [Unknown]
  - Adrenal insufficiency [Recovered/Resolved]
  - White blood cell count decreased [Not Recovered/Not Resolved]
  - Synovial cyst [Not Recovered/Not Resolved]
  - Condition aggravated [Not Recovered/Not Resolved]
  - Haematochezia [Unknown]
  - Neuritis [Unknown]
  - Pneumonia [Unknown]
  - Arthritis [Unknown]
  - Feeling abnormal [Unknown]
  - Bronchiectasis [Unknown]
  - Vomiting [Unknown]
  - Pain in extremity [Unknown]
  - Diarrhoea [Unknown]
  - Vasculitis [Unknown]
  - Product supply issue [Unknown]
  - Motor dysfunction [Unknown]
  - Peritonitis [Not Recovered/Not Resolved]
  - Diarrhoea haemorrhagic [Not Recovered/Not Resolved]
  - Hypersensitivity [Not Recovered/Not Resolved]
  - Haematoma [Not Recovered/Not Resolved]
  - Familial mediterranean fever [Unknown]

NARRATIVE: CASE EVENT DATE: 20200425
